FAERS Safety Report 18589997 (Version 1)
Quarter: 2020Q4

REPORT INFORMATION
  Report Type: Spontaneous
  Country: US (occurrence: US)
  Receive Date: 20201207
  Receipt Date: 20201207
  Transmission Date: 20210114
  Serious: Yes (Other)
  Sender: FDA-Public Use
  Company Number: None

PATIENT
  Age: 39 Year
  Sex: Female
  Weight: 58.5 kg

DRUGS (1)
  1. CLINDAMYCIN. [Suspect]
     Active Substance: CLINDAMYCIN
     Indication: TOOTH ABSCESS
     Route: 048
     Dates: start: 20201117, end: 20201124

REACTIONS (2)
  - Pustule [None]
  - Pruritus [None]

NARRATIVE: CASE EVENT DATE: 20201117
